FAERS Safety Report 19211244 (Version 1)
Quarter: 2021Q2

REPORT INFORMATION
  Report Type: Spontaneous
  Country: US (occurrence: US)
  Receive Date: 20210504
  Receipt Date: 20210504
  Transmission Date: 20210717
  Serious: Yes (Other)
  Sender: FDA-Public Use
  Company Number: None

PATIENT
  Age: 67 Year
  Sex: Male
  Weight: 85.5 kg

DRUGS (6)
  1. ASA [Concomitant]
     Active Substance: ASPIRIN
  2. BRILINTRA [Concomitant]
  3. CBD GEL CAP [Concomitant]
  4. ALLEGRA [Concomitant]
     Active Substance: FEXOFENADINE HYDROCHLORIDE
  5. METOPROLOL. [Concomitant]
     Active Substance: METOPROLOL
  6. PRALUENT [Suspect]
     Active Substance: ALIROCUMAB
     Indication: TYPE IIA HYPERLIPIDAEMIA
     Dosage: ?          QUANTITY:1 INJECTION(S);OTHER FREQUENCY:TWICE MONTHLY;?
     Route: 058
     Dates: start: 20210201, end: 20210504

REACTIONS (2)
  - Blood glucose increased [None]
  - Paraesthesia [None]

NARRATIVE: CASE EVENT DATE: 20210504
